FAERS Safety Report 14331300 (Version 1)
Quarter: 2017Q4

REPORT INFORMATION
  Report Type: Spontaneous
  Country: US (occurrence: US)
  Receive Date: 20171228
  Receipt Date: 20171228
  Transmission Date: 20180321
  Serious: Yes (Other)
  Sender: FDA-Public Use
  Company Number: US-TEVA-2017-US-830584

PATIENT
  Sex: Female

DRUGS (3)
  1. VENOFER [Suspect]
     Active Substance: IRON SUCROSE
     Indication: IRON DEFICIENCY ANAEMIA
     Dosage: 200 MILLIGRAM DAILY; PUSHED OVER 5 MINUTES
     Route: 040
     Dates: start: 20170810, end: 20170821
  2. GABAPENTIN. [Suspect]
     Active Substance: GABAPENTIN
     Route: 048
     Dates: start: 2012
  3. LIPITOR [Concomitant]
     Active Substance: ATORVASTATIN CALCIUM
     Route: 048

REACTIONS (2)
  - Neuropathy peripheral [Not Recovered/Not Resolved]
  - Off label use [Unknown]
